FAERS Safety Report 10298633 (Version 2)
Quarter: 2014Q3

REPORT INFORMATION
  Report Type: Spontaneous
  Country: BR (occurrence: BR)
  Receive Date: 20140711
  Receipt Date: 20140715
  Transmission Date: 20150326
  Serious: Yes (Hospitalization, Other)
  Sender: FDA-Public Use
  Company Number: BR-PFIZER INC-2014190756

PATIENT
  Age: 31 Year
  Sex: Female
  Weight: 65 kg

DRUGS (9)
  1. CALCIFEROL [Concomitant]
     Active Substance: ERGOCALCIFEROL
     Indication: BONE DISORDER
     Dosage: UNK, 2X/DAY
     Dates: start: 2013
  2. TRAMAL RETARD [Concomitant]
     Active Substance: TRAMADOL
     Indication: PAIN IN EXTREMITY
     Dosage: UNK, 3X/DAY
     Dates: start: 201405
  3. ARASID [Concomitant]
     Indication: HEADACHE
     Dosage: UNK
  4. PREDNISONE. [Concomitant]
     Active Substance: PREDNISONE
     Indication: DYSPNOEA
     Dosage: UNK, 1X/DAY
     Dates: start: 2002
  5. FRONTAL [Suspect]
     Active Substance: ALPRAZOLAM
     Indication: AGITATION
     Dosage: UNK, 1X/DAY
     Route: 048
  6. FRONTAL [Suspect]
     Active Substance: ALPRAZOLAM
     Indication: NERVOUSNESS
  7. ALENIA [Concomitant]
     Active Substance: BUDESONIDE\FORMOTEROL FUMARATE
     Indication: ASTHMA
     Dosage: UNK, 2X/DAY
     Dates: start: 2002
  8. ALLEGRA-D [Concomitant]
     Active Substance: FEXOFENADINE\PSEUDOEPHEDRINE
     Indication: ANTIALLERGIC THERAPY
     Dosage: UNK
  9. AMITRIPTYLINE [Concomitant]
     Active Substance: AMITRIPTYLINE
     Indication: MUSCLE RELAXANT THERAPY
     Dosage: UNK, 1X/DAY
     Dates: start: 2013

REACTIONS (4)
  - Spinal disorder [Unknown]
  - Respiratory arrest [Unknown]
  - Nervousness [Unknown]
  - Drug dependence [Unknown]

NARRATIVE: CASE EVENT DATE: 2013
